FAERS Safety Report 12071714 (Version 2)
Quarter: 2016Q4

REPORT INFORMATION
  Report Type: Spontaneous
  Country: US (occurrence: US)
  Receive Date: 20160212
  Receipt Date: 20161107
  Transmission Date: 20170206
  Serious: Yes (Other)
  Sender: FDA-Public Use
  Company Number: US-009507513-1602USA004184

PATIENT
  Sex: Female
  Weight: 49.43 kg

DRUGS (3)
  1. COCAINE [Concomitant]
     Active Substance: COCAINE
     Dosage: UNK
  2. HEMP [Concomitant]
     Active Substance: HEMP
     Dosage: UNK
  3. NEXPLANON [Suspect]
     Active Substance: ETONOGESTREL
     Indication: CONTRACEPTION
     Dosage: UNK
     Route: 059
     Dates: start: 20151231, end: 20160202

REACTIONS (2)
  - Pregnancy with implant contraceptive [Unknown]
  - Unintended pregnancy [Unknown]
